FAERS Safety Report 9500339 (Version 1)
Quarter: 2013Q3

REPORT INFORMATION
  Report Type: Spontaneous
  Country: DE (occurrence: DE)
  Receive Date: 20130905
  Receipt Date: 20130905
  Transmission Date: 20140515
  Serious: Yes (Other)
  Sender: FDA-Public Use
  Company Number: DE-MYLANLABS-2013S1019003

PATIENT
  Sex: Female

DRUGS (4)
  1. METFORMIN [Suspect]
     Indication: DIABETES MELLITUS
     Route: 048
  2. PROPRANOLOL [Suspect]
     Indication: HYPERTENSION
     Route: 048
  3. CANDESARTAN [Suspect]
     Indication: HYPERTENSION
     Route: 048
  4. VITAMIN B12 [Suspect]
     Indication: VITAMIN B12 DEFICIENCY
     Route: 042
     Dates: start: 20130730

REACTIONS (3)
  - Vitamin B12 deficiency [Unknown]
  - Blood glucose fluctuation [Unknown]
  - Diarrhoea [Recovered/Resolved]
